FAERS Safety Report 9153436 (Version 1)
Quarter: 2013Q1

REPORT INFORMATION
  Report Type: Spontaneous
  Country: US (occurrence: None)
  Receive Date: 20130306
  Receipt Date: 20130306
  Transmission Date: 20140127
  Serious: Yes (Hospitalization)
  Sender: FDA-Public Use
  Company Number: None

PATIENT
  Age: 14 Month
  Sex: Female
  Weight: 9.53 kg

DRUGS (1)
  1. NIZATIDINE [Suspect]
     Dosage: 1.5 MG BID PO
     Route: 048
     Dates: start: 20120529, end: 20121210

REACTIONS (4)
  - Cyst [None]
  - Pyrexia [None]
  - Clostridial infection [None]
  - Dehydration [None]
